FAERS Safety Report 22194015 (Version 1)
Quarter: 2023Q2

REPORT INFORMATION
  Report Type: Spontaneous
  Country: CZ (occurrence: CZ)
  Receive Date: 20230411
  Receipt Date: 20230411
  Transmission Date: 20230721
  Serious: Yes (Hospitalization, Other)
  Sender: FDA-Public Use
  Company Number: CZ-BRISTOL-MYERS SQUIBB COMPANY-2023-049060

PATIENT
  Age: 66 Year
  Sex: Male

DRUGS (3)
  1. OPDIVO [Suspect]
     Active Substance: NIVOLUMAB
     Indication: Renal cell carcinoma
     Dates: start: 202112
  2. OPDIVO [Suspect]
     Active Substance: NIVOLUMAB
     Dates: start: 202205
  3. YERVOY [Suspect]
     Active Substance: IPILIMUMAB
     Indication: Renal cell carcinoma
     Dates: start: 202112, end: 202205

REACTIONS (1)
  - Immune-mediated encephalopathy [Recovered/Resolved]

NARRATIVE: CASE EVENT DATE: 20220101
